FAERS Safety Report 8023366-2 (Version None)
Quarter: 2012Q1

REPORT INFORMATION
  Report Type: 
  Country: None (occurrence: None)
  Receive Date: 20120104
  Receipt Date: 20111229
  Transmission Date: 20120608
  Serious: Yes (Hospitalization)
  Sender: FDA-Public Use
  Company Number: US-COVIDIEN/TYCO HEALTHCARE/MALLINCKRODT-T201102979

PATIENT
  Age: 41 Year
  Sex: Male

DRUGS (1)
  1. METHADOSE [Suspect]
     Indication: DRUG DEPENDENCE
     Dosage: UNK
     Dates: start: 20060101

REACTIONS (4)
  - JOINT INJURY [None]
  - FACIAL BONES FRACTURE [None]
  - CEREBRAL HAEMORRHAGE TRAUMATIC [None]
  - INJURY [None]
